FAERS Safety Report 18947742 (Version 1)
Quarter: 2021Q1

REPORT INFORMATION
  Report Type: Spontaneous
  Country: IL (occurrence: IL)
  Receive Date: 20210227
  Receipt Date: 20210227
  Transmission Date: 20210420
  Serious: Yes (Other)
  Sender: FDA-Public Use
  Company Number: IL-UCBSA-2020041102

PATIENT
  Age: 26 Year
  Sex: Female

DRUGS (4)
  1. CIMZIA [Suspect]
     Active Substance: CERTOLIZUMAB PEGOL
     Indication: RHEUMATOID ARTHRITIS
     Dosage: 400 MILLIGRAM, EV 4 WEEKS
     Dates: start: 202008
  2. MINESSE [Concomitant]
     Active Substance: ETHINYL ESTRADIOL\GESTODENE
     Indication: PRODUCT USED FOR UNKNOWN INDICATION
  3. CIPRODEX [CIPROFLOXACIN HYDROCHLORIDE] [Concomitant]
     Active Substance: CIPROFLOXACIN HYDROCHLORIDE
     Indication: URINARY TRACT INFECTION
  4. CIMZIA [Suspect]
     Active Substance: CERTOLIZUMAB PEGOL
     Indication: CROHN^S DISEASE
     Dosage: UNK, EV 2 WEEKS(QOW)

REACTIONS (4)
  - Urinary tract infection [Recovering/Resolving]
  - Insomnia [Recovering/Resolving]
  - Fatigue [Unknown]
  - Faecal calprotectin increased [Recovering/Resolving]

NARRATIVE: CASE EVENT DATE: 2020
